FAERS Safety Report 6154699-2 (Version None)
Quarter: 2009Q2

REPORT INFORMATION
  Report Type: 
  Country: None (occurrence: None)
  Receive Date: 20090414
  Receipt Date: 20090409
  Transmission Date: 20091009
  Serious: Yes (Hospitalization)
  Sender: FDA-Public Use
  Company Number: A0777800A

PATIENT
  Age: 58 Year
  Sex: Female

DRUGS (7)
  1. RELENZA [Suspect]
     Indication: DRUG USE FOR UNKNOWN INDICATION
     Route: 055
     Dates: start: 20090331
  2. UNKNOWN [Concomitant]
  3. FLUMADINE [Concomitant]
  4. LEVAQUIN [Concomitant]
  5. ETODOLAC [Concomitant]
  6. HYDROMET [Concomitant]
  7. COMBIVENT [Concomitant]

REACTIONS (6)
  - CHEST PAIN [None]
  - INCOHERENT [None]
  - INSOMNIA [None]
  - OXYGEN SATURATION DECREASED [None]
  - PNEUMONIA [None]
  - WHEEZING [None]
